FAERS Safety Report 5169884-6 (Version None)
Quarter: 2006Q4

REPORT INFORMATION
  Report Type: 
  Country: None (occurrence: None)
  Receive Date: 20061212
  Receipt Date: 20061012
  Transmission Date: 20070319
  Serious: Yes (Other)
  Sender: FDA-Public Use
  Company Number: JP-ROCHE-466896

PATIENT
  Age: 41 Year
  Sex: Male

DRUGS (9)
  1. VALIXA [Suspect]
     Indication: CYTOMEGALOVIRUS CHORIORETINITIS
     Dosage: REDUCED FROM 1.8 GRAM.
     Route: 048
     Dates: start: 20060126, end: 20060308
  2. VALIXA [Suspect]
     Route: 048
     Dates: start: 20060119, end: 20060125
  3. RETROVIR [Suspect]
     Indication: HIV INFECTION
     Route: 048
     Dates: start: 20051226, end: 20060124
  4. EPIVIR [Suspect]
     Indication: HIV INFECTION
     Route: 048
     Dates: start: 20051226
  5. LEXIVA [Suspect]
     Indication: HIV INFECTION
     Route: 048
     Dates: start: 20051226
  6. BACTRIM [Concomitant]
     Route: 048
     Dates: start: 20060105
  7. ZERIT [Concomitant]
     Dosage: GENERIC NAME REPORTED AS SANILVUDINE.
     Route: 048
     Dates: start: 20060125
  8. DIFLUCAN [Concomitant]
     Route: 065
     Dates: start: 20051226, end: 20060111
  9. BICILLIN [Concomitant]
     Dosage: 1.2 MILLION IU.
     Route: 048
     Dates: start: 20051208, end: 20060104

REACTIONS (9)
  - ATYPICAL MYCOBACTERIAL INFECTION [None]
  - BLOOD CREATINE INCREASED [None]
  - BLOOD UREA INCREASED [None]
  - BLOOD URIC ACID DECREASED [None]
  - BONE MARROW FAILURE [None]
  - IMMUNE RECONSTITUTION SYNDROME [None]
  - LYMPHADENOPATHY [None]
  - PANCYTOPENIA [None]
  - TUBERCULOSIS [None]
